FAERS Safety Report 14690914 (Version 3)
Quarter: 2018Q2

REPORT INFORMATION
  Report Type: Spontaneous
  Country: JP (occurrence: JP)
  Receive Date: 20180328
  Receipt Date: 20180403
  Transmission Date: 20180711
  Serious: Yes (Hospitalization)
  Sender: FDA-Public Use
  Company Number: JP-PFIZER INC-2018090625

PATIENT
  Sex: Female

DRUGS (3)
  1. FOSPHENYTOIN SODIUM. [Concomitant]
     Active Substance: FOSPHENYTOIN SODIUM
     Dosage: 14 MG, UNK
     Route: 041
     Dates: start: 20180222, end: 20180226
  2. FOSPHENYTOIN SODIUM. [Concomitant]
     Active Substance: FOSPHENYTOIN SODIUM
     Indication: CONVULSION NEONATAL
     Dosage: 45 MG, UNK
     Route: 041
     Dates: start: 20180222, end: 20180222
  3. NOBELBAR [Suspect]
     Active Substance: PHENOBARBITAL SODIUM
     Indication: CONVULSION NEONATAL
     Dosage: 25 MG, UNK
     Route: 041
     Dates: start: 20180220, end: 20180220

REACTIONS (1)
  - Blood creatine phosphokinase increased [Recovered/Resolved with Sequelae]

NARRATIVE: CASE EVENT DATE: 20180220
